FAERS Safety Report 6818830-5 (Version None)
Quarter: 2010Q2

REPORT INFORMATION
  Report Type: 
  Country: None (occurrence: None)
  Receive Date: 20100630
  Receipt Date: 20100621
  Transmission Date: 20101027
  Serious: Yes (Other)
  Sender: FDA-Public Use
  Company Number: 600904

PATIENT

DRUGS (3)
  1. CARBOPLATIN [Suspect]
     Dosage: INTRAVENOUS
     Route: 042
  2. NAVELBINE [Suspect]
     Dosage: INTRAVENOUS
     Route: 042
  3. ZOFRAN [Suspect]
     Dosage: INTRAVENOUS
     Route: 042

REACTIONS (7)
  - INFUSION SITE ERYTHEMA [None]
  - INFUSION SITE EXTRAVASATION [None]
  - INFUSION SITE HYPERSENSITIVITY [None]
  - INFUSION SITE PAIN [None]
  - INFUSION SITE PRURITUS [None]
  - INFUSION SITE VESICLES [None]
  - UNEVALUABLE EVENT [None]
